FAERS Safety Report 12868672 (Version 1)
Quarter: 2016Q4

REPORT INFORMATION
  Report Type: Other
  Country: IT (occurrence: IT)
  Receive Date: 20161021
  Receipt Date: 20161021
  Transmission Date: 20170207
  Serious: Yes (Other)
  Sender: FDA-Public Use
  Company Number: IT-LUPIN PHARMACEUTICALS INC.-2016-04723

PATIENT
  Age: 59 Year
  Sex: Male

DRUGS (3)
  1. VANCOMYCIN [Suspect]
     Active Substance: VANCOMYCIN
     Indication: LENS EXTRACTION
     Dosage: 1.0 MG/0.2 ML
  2. LIDOCAINE. [Concomitant]
     Active Substance: LIDOCAINE
     Indication: LENS EXTRACTION
     Route: 065
  3. SODIUM HYALURONATE [Concomitant]
     Active Substance: HYALURONATE SODIUM
     Indication: LENS EXTRACTION
     Route: 065

REACTIONS (1)
  - Retinal vasculitis [Not Recovered/Not Resolved]
